FAERS Safety Report 9066931 (Version 1)
Quarter: 2013Q1

REPORT INFORMATION
  Report Type: Spontaneous
  Country: US (occurrence: US)
  Receive Date: 20130214
  Receipt Date: 20130214
  Transmission Date: 20140127
  Serious: Yes (Hospitalization)
  Sender: FDA-Public Use
  Company Number: CHPA2013US002770

PATIENT
  Age: 43 Year
  Sex: Female

DRUGS (3)
  1. EXCEDRIN EXTRA STRENGTH [Suspect]
     Dosage: 4 TO 6 PILLS DAILY
     Route: 048
  2. EXCEDRIN PM [Suspect]
     Dosage: 4 TO 6 PILLS DAILY
     Route: 048
  3. TYLENOL [Concomitant]

REACTIONS (4)
  - Mental disorder [Unknown]
  - Somnolence [Unknown]
  - Incorrect drug administration duration [Unknown]
  - Incorrect dose administered [Unknown]
